FAERS Safety Report 19311992 (Version 5)
Quarter: 2025Q3

REPORT INFORMATION
  Report Type: Spontaneous
  Country: EU (occurrence: EU)
  Receive Date: 20210527
  Receipt Date: 20250708
  Transmission Date: 20251021
  Serious: Yes (Hospitalization, Other)
  Sender: UCB
  Company Number: EU-UCBSA-2021024094

PATIENT
  Age: 82 Year
  Sex: Male

DRUGS (13)
  1. LACOSAMIDE [Suspect]
     Active Substance: LACOSAMIDE
     Indication: Epilepsy
     Dates: start: 20190408, end: 201904
  2. KEPPRA [Suspect]
     Active Substance: LEVETIRACETAM
     Indication: Epilepsy
     Dates: start: 2012, end: 201904
  3. VALPROATE SODIUM [Concomitant]
     Active Substance: VALPROATE SODIUM
     Indication: Epilepsy
  4. VALPROATE SODIUM [Concomitant]
     Active Substance: VALPROATE SODIUM
  5. FUROSEMIDE [Concomitant]
     Active Substance: FUROSEMIDE
     Indication: Product used for unknown indication
  6. AMLODIPINE [Concomitant]
     Active Substance: AMLODIPINE BESYLATE
     Indication: Product used for unknown indication
  7. HYDROXYZINE [Concomitant]
     Active Substance: HYDROXYZINE HYDROCHLORIDE
     Indication: Product used for unknown indication
  8. VENLAFAXINE [Concomitant]
     Active Substance: VENLAFAXINE HYDROCHLORIDE
     Indication: Depression
  9. VORTIOXETINE [Concomitant]
     Active Substance: VORTIOXETINE
     Indication: Depression
  10. ESCITALOPRAM [Concomitant]
     Active Substance: ESCITALOPRAM OXALATE
     Indication: Depression
  11. EBASTINE [Concomitant]
     Active Substance: EBASTINE
     Indication: Product used for unknown indication
  12. TIOTROPIUM [Concomitant]
     Active Substance: TIOTROPIUM
     Indication: Product used for unknown indication
  13. INSULIN NOS [Concomitant]
     Active Substance: INSULIN NOS
     Indication: Type 2 diabetes mellitus

REACTIONS (5)
  - Personality change [Recovered/Resolved]
  - Behaviour disorder [Unknown]
  - Chronic obstructive pulmonary disease [Unknown]
  - Urinary retention [Unknown]
  - Aggression [Unknown]

NARRATIVE: CASE EVENT DATE: 20190101
